FAERS Safety Report 5854469-6 (Version None)
Quarter: 2008Q3

REPORT INFORMATION
  Report Type: 
  Country: None (occurrence: None)
  Receive Date: 20080822
  Receipt Date: 20080811
  Transmission Date: 20090109
  Serious: Yes (Death, Other)
  Sender: FDA-Public Use
  Company Number: US-PFIZER INC-2008059325

PATIENT
  Sex: Male

DRUGS (12)
  1. CHANTIX [Suspect]
  2. ACETYLSALICYLIC ACID SRT [Concomitant]
  3. FUROSEMIDE [Concomitant]
  4. CITALOPRAM HYDROBROMIDE [Concomitant]
  5. OMEPRAZOLE [Concomitant]
  6. POTASSIUM CHLORIDE [Concomitant]
  7. ATENOLOL [Concomitant]
  8. TAMSULOSIN HCL [Concomitant]
  9. RISPERDAL [Concomitant]
  10. SIMVASTATIN [Concomitant]
  11. FORADIL [Concomitant]
  12. PROVENTIL GENTLEHALER [Concomitant]

REACTIONS (20)
  - ALCOHOL USE [None]
  - ATAXIA [None]
  - CHRONIC HEPATITIS [None]
  - CHRONIC OBSTRUCTIVE PULMONARY DISEASE [None]
  - CONVULSION [None]
  - DEATH [None]
  - DRUG LEVEL INCREASED [None]
  - EATING DISORDER [None]
  - FALL [None]
  - FEELING ABNORMAL [None]
  - HYPERLIPIDAEMIA [None]
  - HYPERTENSION [None]
  - IMPAIRED HEALING [None]
  - LOSS OF CONSCIOUSNESS [None]
  - LOWER LIMB FRACTURE [None]
  - MOOD SWINGS [None]
  - NAUSEA [None]
  - SOCIAL AVOIDANT BEHAVIOUR [None]
  - SURGICAL STAPLING [None]
  - VOMITING [None]
